FAERS Safety Report 8230150-3 (Version None)
Quarter: 2012Q1

REPORT INFORMATION
  Report Type: 
  Country: None (occurrence: None)
  Receive Date: 20120323
  Receipt Date: 20120320
  Transmission Date: 20120608
  Serious: No
  Sender: FDA-Public Use
  Company Number: US-PFIZER INC-2012061009

PATIENT
  Sex: Female
  Weight: 76.644 kg

DRUGS (1)
  1. CHANTIX [Suspect]
     Indication: SMOKING CESSATION THERAPY
     Dosage: 0.5 MG,DAILY
     Dates: start: 20120303, end: 20120305

REACTIONS (6)
  - HEADACHE [None]
  - NAUSEA [None]
  - FATIGUE [None]
  - ABNORMAL DREAMS [None]
  - NERVOUSNESS [None]
  - INSOMNIA [None]
